FAERS Safety Report 8096591-2 (Version None)
Quarter: 2012Q1

REPORT INFORMATION
  Report Type: 
  Country: None (occurrence: None)
  Receive Date: 20120131
  Receipt Date: 20120130
  Transmission Date: 20120608
  Serious: Yes (Other)
  Sender: FDA-Public Use
  Company Number: US-AMGEN-USASP2012004178

PATIENT
  Age: 75 Year
  Sex: Female

DRUGS (5)
  1. IRON [Concomitant]
  2. VITAMIN D [Concomitant]
  3. PROLIA [Suspect]
     Indication: OSTEOPOROSIS POSTMENOPAUSAL
     Dosage: UNK UNK, Q6MO
     Dates: start: 20101201
  4. FOLIC ACID [Concomitant]
  5. CALCIUM [Concomitant]

REACTIONS (3)
  - NASOPHARYNGITIS [None]
  - HAEMOLYTIC ANAEMIA [None]
  - HAEMOGLOBIN DECREASED [None]
